FAERS Safety Report 16201670 (Version 3)
Quarter: 2019Q2

REPORT INFORMATION
  Report Type: Report from Study
  Country: KR (occurrence: KR)
  Receive Date: 20190416
  Receipt Date: 20190430
  Transmission Date: 20190711
  Serious: Yes (Hospitalization)
  Sender: FDA-Public Use
  Company Number: KR-ROCHE-2299557

PATIENT
  Age: 58 Year
  Sex: Female
  Weight: 43.3 kg

DRUGS (10)
  1. ATEZOLIZUMAB. [Suspect]
     Active Substance: ATEZOLIZUMAB
     Indication: HER-2 POSITIVE BREAST CANCER
     Dosage: ON 26/MAR/2019, MOST RECENT DOSE OF BLINDED ATEZOLIZUMAB PRIOR TO AE AND SAE ONSET.
     Route: 042
     Dates: start: 20190118
  2. CHLORHEXIDIN [CHLORHEXIDINE] [Concomitant]
     Indication: PROPHYLAXIS
     Route: 065
     Dates: start: 20190119
  3. CYCLOPHOSPHAMIDE. [Suspect]
     Active Substance: CYCLOPHOSPHAMIDE
     Indication: HER-2 POSITIVE BREAST CANCER
     Dosage: ON 11/MAR/2019, MOST RECENT DOSE 714 MG OF CYCLOPHOSPHAMIDE PRIOR TO SAE ONSET.
     Route: 042
     Dates: start: 20190118
  4. PERTUZUMAB. [Suspect]
     Active Substance: PERTUZUMAB
     Route: 042
     Dates: start: 20190326
  5. MIRTAZAPINE. [Concomitant]
     Active Substance: MIRTAZAPINE
     Indication: DEPRESSION
     Dosage: 0.5 OTHER
     Route: 048
     Dates: start: 20190131
  6. PACLITAXEL. [Suspect]
     Active Substance: PACLITAXEL
     Indication: HER-2 POSITIVE BREAST CANCER
     Dosage: ON 29/MAR/2019, MOST RECENT DOSE OF PACLITAXEL PRIOR TO SAE ONSET (112 MG)
     Route: 042
     Dates: start: 20190326
  7. TRASTUZUMAB. [Suspect]
     Active Substance: TRASTUZUMAB
     Indication: HER-2 POSITIVE BREAST CANCER
     Dosage: ON 26/MAR/2019, MOST RECENT DOSE 358 MG OF TRASTUZUMAB PRIOR TO SAE ONSET.
     Route: 042
     Dates: start: 20190326
  8. DOXORUBICIN [Suspect]
     Active Substance: DOXORUBICIN
     Indication: HER-2 POSITIVE BREAST CANCER
     Dosage: ON 11/MAR/2019, MOST RECENT DOSE 71 MG OF DOXORUBICIN PRIOR TO SAE ONSET.
     Route: 042
     Dates: start: 20190118
  9. PERTUZUMAB. [Suspect]
     Active Substance: PERTUZUMAB
     Indication: HER-2 POSITIVE BREAST CANCER
     Dosage: ON 26/MAR/2019, MOST RECENT DOSE OF PERTUZUMAB 840 MG PRIOR TO SAE ONSET.
     Route: 042
     Dates: start: 20190326
  10. TRASTUZUMAB. [Suspect]
     Active Substance: TRASTUZUMAB
     Dosage: ON 26/MAR/2019, MOST RECENT DOSE 358 MG OF TRASTUZUMAB PRIOR TO AE AND SAE ONSET.
     Route: 042
     Dates: start: 20190326

REACTIONS (2)
  - Pneumonitis [Not Recovered/Not Resolved]
  - Pneumonia bacterial [Recovered/Resolved]

NARRATIVE: CASE EVENT DATE: 20190406
